FAERS Safety Report 5679294-0 (Version None)
Quarter: 2008Q1

REPORT INFORMATION
  Report Type: 
  Country: None (occurrence: None)
  Receive Date: 20080325
  Receipt Date: 20080321
  Transmission Date: 20080703
  Serious: Yes (Death)
  Sender: FDA-Public Use
  Company Number: US-JNJFOC-20080101531

PATIENT
  Sex: Male
  Weight: 48.08 kg

DRUGS (5)
  1. CONCERTA [Suspect]
     Indication: IMPULSIVE BEHAVIOUR
     Route: 048
  2. CONCERTA [Suspect]
     Indication: ATTENTION DEFICIT/HYPERACTIVITY DISORDER
     Route: 048
  3. RISPERDAL [Suspect]
     Indication: AGGRESSION
     Route: 048
  4. RITALIN [Concomitant]
     Indication: ATTENTION DEFICIT/HYPERACTIVITY DISORDER
  5. TENEX [Concomitant]
     Route: 048

REACTIONS (7)
  - ANOREXIA [None]
  - COMPLETED SUICIDE [None]
  - HALLUCINATION [None]
  - HALLUCINATION, AUDITORY [None]
  - HEART RATE INCREASED [None]
  - SELF INJURIOUS BEHAVIOUR [None]
  - SOMNOLENCE [None]
